FAERS Safety Report 6542405-9 (Version None)
Quarter: 2010Q1

REPORT INFORMATION
  Report Type: 
  Country: None (occurrence: None)
  Receive Date: 20100119
  Receipt Date: 20100108
  Transmission Date: 20100710
  Serious: Yes (Disabling, Other)
  Sender: FDA-Public Use
  Company Number: PHEH2009US14349

PATIENT
  Sex: Female

DRUGS (7)
  1. RECLAST [Suspect]
     Indication: OSTEOPOROSIS
     Dosage: UNK
     Dates: start: 20091020, end: 20091020
  2. SYNTHROID [Concomitant]
     Dosage: 88 UG, QD
     Route: 048
  3. HYDROCODONE [Concomitant]
  4. AMBIEN [Concomitant]
     Indication: INSOMNIA
     Dosage: 10 MG, QHS
     Route: 048
  5. CALCIUM W/VITAMIN D NOS [Concomitant]
     Indication: MINERAL SUPPLEMENTATION
     Dosage: UNK
  6. LORCET-HD [Concomitant]
     Indication: BACK PAIN
     Dosage: 10/650 Q6H PRN PAIN
     Route: 048
  7. LORCET-HD [Concomitant]
     Indication: NECK PAIN

REACTIONS (12)
  - ARTHRALGIA [None]
  - BONE PAIN [None]
  - CHILLS [None]
  - DIZZINESS [None]
  - DYSPNOEA [None]
  - FATIGUE [None]
  - FEELING ABNORMAL [None]
  - HEADACHE [None]
  - MALAISE [None]
  - MOBILITY DECREASED [None]
  - NAUSEA [None]
  - PYREXIA [None]
